FAERS Safety Report 4619986-5 (Version None)
Quarter: 2005Q1

REPORT INFORMATION
  Report Type: 
  Country: None (occurrence: None)
  Receive Date: 20050324
  Receipt Date: 20050309
  Transmission Date: 20050727
  Serious: Yes (Disabling)
  Sender: FDA-Public Use
  Company Number: 2005AP01700

PATIENT
  Age: 62 Year
  Sex: Female

DRUGS (4)
  1. ANAPEINE [Suspect]
     Indication: EPIDURAL ANAESTHESIA
     Dosage: 7.5 MG/ML ED
     Route: 008
     Dates: start: 20041221
  2. MARCAINE [Suspect]
     Indication: SPINAL ANAESTHESIA
     Dates: start: 20041221
  3. DROLEPTAN [Concomitant]
  4. FENTANEST [Concomitant]

REACTIONS (1)
  - PARALYSIS [None]
